FAERS Safety Report 10209333 (Version 1)
Quarter: 2014Q2

REPORT INFORMATION
  Report Type: Spontaneous
  Country: US (occurrence: US)
  Receive Date: 20140531
  Receipt Date: 20140531
  Transmission Date: 20141212
  Serious: No
  Sender: FDA-Public Use
  Company Number: US-009507513-1405USA015049

PATIENT
  Age: 74 Year
  Sex: Female

DRUGS (5)
  1. CLARITIN-D-12 [Suspect]
     Indication: SEASONAL ALLERGY
     Dosage: PRN DURING ALLERGY SEASON
     Route: 048
  2. VALIUM [Concomitant]
     Dosage: UNK, PRN
  3. AMBIEN [Concomitant]
     Dosage: UNK, PRN
  4. TYLENOL [Concomitant]
     Dosage: UNK, PRN
  5. PEPTO-BISMOL [Concomitant]
     Dosage: SOMETIMES

REACTIONS (2)
  - Dry mouth [Not Recovered/Not Resolved]
  - Wrong technique in drug usage process [Unknown]
